FAERS Safety Report 15478077 (Version 1)
Quarter: 2018Q4

REPORT INFORMATION
  Report Type: Spontaneous
  Country: GB (occurrence: GB)
  Receive Date: 20181009
  Receipt Date: 20181009
  Transmission Date: 20190205
  Serious: Yes (Other)
  Sender: FDA-Public Use
  Company Number: PHHY2018GB119054

PATIENT
  Age: 62 Year
  Sex: Female
  Weight: 56 kg

DRUGS (7)
  1. AMOXICILLIN. [Concomitant]
     Active Substance: AMOXICILLIN
     Indication: PRODUCT USED FOR UNKNOWN INDICATION
     Dosage: DRUG STRUCTURE DOSAGE NUMBER 3 UG/LITRE, APPLY, CUMULATIVE 30 UG/LITRE
     Route: 065
     Dates: start: 20180907, end: 20180908
  2. FUSIDIC ACID [Concomitant]
     Active Substance: FUSIDIC ACID
     Indication: PRODUCT USED FOR UNKNOWN INDICATION
     Dosage: UNK UNK, QD, USE AS DIRECTED
     Route: 065
     Dates: start: 20180907, end: 20180908
  3. IBUPROFEN. [Concomitant]
     Active Substance: IBUPROFEN
     Indication: PRODUCT USED FOR UNKNOWN INDICATION
     Dosage: DRUG STRUCTURE DOSAGE NUMBER 3 UG/LITRE, APPLY, CUMULATIVE, 39 UG/LITRE
     Route: 065
     Dates: start: 20180904
  4. DOXYCYCLINE. [Suspect]
     Active Substance: DOXYCYCLINE
     Indication: PRODUCT USED FOR UNKNOWN INDICATION
     Dosage: 600 MG, QD (2 ON FIRST DOSE)
     Route: 065
     Dates: start: 20180914
  5. PARACETAMOL [Concomitant]
     Active Substance: ACETAMINOPHEN
     Indication: PRODUCT USED FOR UNKNOWN INDICATION
     Dosage: ONE OR TWO UP TO FOUR TIMES A DAY
     Route: 065
     Dates: start: 20180904, end: 20180918
  6. CHLORAMPHENICOL [Concomitant]
     Active Substance: CHLORAMPHENICOL
     Indication: PRODUCT USED FOR UNKNOWN INDICATION
     Dosage: DRUG STRUCTURE DOSAGE NUMBER 3 UG/LITRE, APPLY, CUMULATIVE, 9 UG/LITRE
     Route: 065
     Dates: start: 20180914
  7. CO-AMOXICLAV [Concomitant]
     Active Substance: AMOXICILLIN\CLAVULANATE POTASSIUM
     Indication: PRODUCT USED FOR UNKNOWN INDICATION
     Dosage: UNK, UNK, 3 UG/LITRE
     Route: 065
     Dates: start: 20180917

REACTIONS (2)
  - Urticaria [Recovering/Resolving]
  - Lip swelling [Unknown]

NARRATIVE: CASE EVENT DATE: 20180917
